FAERS Safety Report 13503276 (Version 1)
Quarter: 2017Q2

REPORT INFORMATION
  Report Type: Spontaneous
  Country: US (occurrence: US)
  Receive Date: 20170502
  Receipt Date: 20170502
  Transmission Date: 20170830
  Serious: Yes (Other)
  Sender: FDA-Public Use
  Company Number: None

PATIENT
  Age: 82 Year
  Sex: Female
  Weight: 87.54 kg

DRUGS (13)
  1. RESTASIS [Concomitant]
     Active Substance: CYCLOSPORINE
  2. HYDROXYCLORQUINE [Concomitant]
  3. LASIX [Concomitant]
     Active Substance: FUROSEMIDE
  4. ASA [Concomitant]
     Active Substance: ASPIRIN
  5. VITAMIN D [Concomitant]
     Active Substance: CHOLECALCIFEROL
  6. MULTIVITAMIN [Concomitant]
     Active Substance: VITAMINS
  7. CPAP MACHINE WITH OXYGEN [Concomitant]
  8. LEVOFLOXACIN. [Suspect]
     Active Substance: LEVOFLOXACIN
     Indication: UPPER RESPIRATORY TRACT INFECTION
     Route: 048
     Dates: start: 20170302, end: 20170311
  9. FOLIC ACID. [Concomitant]
     Active Substance: FOLIC ACID
  10. XANAX [Concomitant]
     Active Substance: ALPRAZOLAM
  11. AMLODIPINE [Concomitant]
     Active Substance: AMLODIPINE BESYLATE
  12. ROPINIROLE. [Concomitant]
     Active Substance: ROPINIROLE
  13. LISINOPRIL. [Concomitant]
     Active Substance: LISINOPRIL

REACTIONS (6)
  - Mental status changes [None]
  - Neck pain [None]
  - Musculoskeletal pain [None]
  - Pain in extremity [None]
  - Formication [None]
  - Back pain [None]

NARRATIVE: CASE EVENT DATE: 20170307
